FAERS Safety Report 5478610-2 (Version None)
Quarter: 2007Q4

REPORT INFORMATION
  Report Type: 
  Country: None (occurrence: None)
  Receive Date: 20071005
  Receipt Date: 20070925
  Transmission Date: 20080405
  Serious: Yes (Other)
  Sender: FDA-Public Use
  Company Number: US-SHR-US-2007-036110

PATIENT
  Age: 53 Year
  Sex: Female

DRUGS (4)
  1. BETASERON [Suspect]
     Indication: PROGRESSIVE MULTIPLE SCLEROSIS
     Dosage: 8 MIU, EVERY 2D
     Route: 058
     Dates: start: 19940314
  2. NEURONTIN [Concomitant]
  3. ARIMIDEX [Concomitant]
  4. COZAAR [Concomitant]

REACTIONS (2)
  - BREAST CANCER [None]
  - INJECTION SITE MASS [None]
